FAERS Safety Report 9353878 (Version 1)
Quarter: 2013Q2

REPORT INFORMATION
  Report Type: Report from Study
  Country: DE (occurrence: DE)
  Receive Date: 20130618
  Receipt Date: 20130618
  Transmission Date: 20140414
  Serious: Yes (Hospitalization)
  Sender: FDA-Public Use
  Company Number: DE-SANOFI-AVENTIS-2013SA061273

PATIENT
  Age: 55 Year
  Sex: Male
  Weight: 51 kg

DRUGS (4)
  1. DOCETAXEL [Suspect]
     Indication: HYPOPHARYNGEAL CANCER
     Route: 041
     Dates: start: 20110811, end: 20110811
  2. CETUXIMAB [Suspect]
     Indication: HYPOPHARYNGEAL CANCER
     Route: 041
     Dates: start: 20110811, end: 20110811
  3. CETUXIMAB [Suspect]
     Indication: HYPOPHARYNGEAL CANCER
     Route: 041
  4. CISPLATIN [Suspect]
     Indication: HYPOPHARYNGEAL CANCER
     Route: 041
     Dates: start: 20110811, end: 20110811

REACTIONS (3)
  - Aphagia [Recovering/Resolving]
  - Dehydration [Recovering/Resolving]
  - General physical health deterioration [Recovering/Resolving]
